FAERS Safety Report 8313822-1 (Version None)
Quarter: 2012Q2

REPORT INFORMATION
  Report Type: 
  Country: None (occurrence: None)
  Receive Date: 20120426
  Receipt Date: 20120416
  Transmission Date: 20120825
  Serious: Yes (Other)
  Sender: FDA-Public Use
  Company Number: CA-JNJFOC-20120406748

PATIENT
  Sex: Female
  Weight: 78.6 kg

DRUGS (4)
  1. REMICADE [Suspect]
     Indication: COLITIS ULCERATIVE
     Route: 042
     Dates: start: 20070618
  2. MESALAMINE [Concomitant]
     Route: 065
  3. REMICADE [Suspect]
     Dosage: 29TH INFUSION
     Route: 042
     Dates: start: 20120416
  4. IMURAN [Concomitant]
     Route: 048

REACTIONS (2)
  - ROAD TRAFFIC ACCIDENT [None]
  - PAIN [None]
